FAERS Safety Report 19668270 (Version 1)
Quarter: 2021Q3

REPORT INFORMATION
  Report Type: Spontaneous
  Country: JP (occurrence: JP)
  Receive Date: 20210806
  Receipt Date: 20210806
  Transmission Date: 20211014
  Serious: Yes (Life-Threatening, Hospitalization)
  Sender: FDA-Public Use
  Company Number: NVSJ2021JP011717

PATIENT
  Age: 60 Year
  Sex: Male

DRUGS (12)
  1. RED BLOOD CELLS [Concomitant]
     Active Substance: HUMAN RED BLOOD CELL
     Dosage: 800 ML, 2 TIMES A MONTH
     Route: 065
     Dates: start: 20190501, end: 20190528
  2. RED BLOOD CELLS [Concomitant]
     Active Substance: HUMAN RED BLOOD CELL
     Dosage: 1600 ML, 4 TIMES A MONTH
     Route: 065
     Dates: start: 20190403, end: 20190430
  3. PLATELETS [Concomitant]
     Active Substance: HUMAN PLATELET, ALLOGENIC
     Indication: PRODUCT USED FOR UNKNOWN INDICATION
     Dosage: 1800 ML, 9 TIMES A MONTH
     Route: 065
     Dates: start: 20190306, end: 20190402
  4. REVOLADE [Concomitant]
     Active Substance: ELTROMBOPAG OLAMINE
     Indication: APLASTIC ANAEMIA
     Dosage: 75 MG
     Route: 048
     Dates: start: 20190403, end: 20190416
  5. THYMOGLOBULINE [Concomitant]
     Active Substance: LAPINE T-LYMPHOCYTE IMMUNE GLOBULIN
     Indication: APLASTIC ANAEMIA
     Dosage: 250 MG
     Route: 065
     Dates: start: 20190320, end: 20190324
  6. CICLOSPORIN [Suspect]
     Active Substance: CYCLOSPORINE
     Indication: APLASTIC ANAEMIA
     Dosage: 300 MG
     Route: 048
     Dates: start: 20190320, end: 20190405
  7. CICLOSPORIN [Suspect]
     Active Substance: CYCLOSPORINE
     Dosage: 250 MG
     Route: 048
     Dates: start: 20190408, end: 20190424
  8. CICLOSPORIN [Suspect]
     Active Substance: CYCLOSPORINE
     Dosage: 300 MG
     Route: 048
     Dates: start: 20190425, end: 20190507
  9. REVOLADE [Concomitant]
     Active Substance: ELTROMBOPAG OLAMINE
     Dosage: 100 MG
     Route: 048
     Dates: start: 20190417, end: 20200218
  10. PLATELETS [Concomitant]
     Active Substance: HUMAN PLATELET, ALLOGENIC
     Dosage: 1000 ML, 5 TIMES A MONTH
     Route: 065
     Dates: start: 20190403, end: 20190430
  11. PLATELETS [Concomitant]
     Active Substance: HUMAN PLATELET, ALLOGENIC
     Dosage: 200 ML, 1 TIME A MONTH
     Route: 065
     Dates: start: 20190501, end: 20190528
  12. RED BLOOD CELLS [Concomitant]
     Active Substance: HUMAN RED BLOOD CELL
     Indication: PRODUCT USED FOR UNKNOWN INDICATION
     Dosage: 800 ML, 2 TIMES A MONTH
     Route: 065
     Dates: start: 20190306, end: 20190402

REACTIONS (3)
  - Aplastic anaemia [Recovered/Resolved]
  - Condition aggravated [Recovered/Resolved]
  - Product use in unapproved indication [Unknown]

NARRATIVE: CASE EVENT DATE: 20190802
